FAERS Safety Report 24569779 (Version 1)
Quarter: 2024Q4

REPORT INFORMATION
  Report Type: Spontaneous
  Country: CN (occurrence: CN)
  Receive Date: 20241031
  Receipt Date: 20241031
  Transmission Date: 20250115
  Serious: Yes (Hospitalization, Other)
  Sender: PFIZER
  Company Number: CN-PFIZER INC-PV202400141097

PATIENT
  Age: 27 Year
  Sex: Female
  Weight: 88 kg

DRUGS (4)
  1. METHOTREXATE SODIUM [Suspect]
     Active Substance: METHOTREXATE SODIUM
     Indication: Benign hydatidiform mole
     Dosage: 50.000 MG, ALTERNATE DAY
     Route: 030
     Dates: start: 20241014, end: 20241020
  2. METHOTREXATE SODIUM [Suspect]
     Active Substance: METHOTREXATE SODIUM
     Indication: Drug-induced liver injury
  3. SODIUM CHLORIDE [Concomitant]
     Active Substance: SODIUM CHLORIDE
     Indication: Benign hydatidiform mole
     Dosage: 2.000 ML, ALTERNATE DAY
     Route: 030
     Dates: start: 20241015, end: 20241021
  4. LEUCOVORIN CALCIUM [Concomitant]
     Active Substance: LEUCOVORIN CALCIUM
     Indication: Benign hydatidiform mole
     Dosage: 15.000 MG, ALTERNATE DAY
     Route: 030
     Dates: start: 20241015, end: 20241021

REACTIONS (1)
  - Liver injury [Recovering/Resolving]

NARRATIVE: CASE EVENT DATE: 20241020
